FAERS Safety Report 9636370 (Version 1)
Quarter: 2013Q4

REPORT INFORMATION
  Report Type: Spontaneous
  Country: GB (occurrence: GB)
  Receive Date: 20131021
  Receipt Date: 20131021
  Transmission Date: 20140711
  Serious: Yes (Other)
  Sender: FDA-Public Use
  Company Number: GB-BRISTOL-MYERS SQUIBB COMPANY-19607142

PATIENT
  Sex: Male

DRUGS (1)
  1. ELIQUIS [Suspect]
     Dosage: TABLETS
     Route: 048

REACTIONS (2)
  - Tracheostomy [Unknown]
  - Arthropathy [Unknown]
